FAERS Safety Report 16543442 (Version 1)
Quarter: 2019Q3

REPORT INFORMATION
  Report Type: Spontaneous
  Country: IT (occurrence: IT)
  Receive Date: 20190709
  Receipt Date: 20190709
  Transmission Date: 20191004
  Serious: Yes (Other)
  Sender: FDA-Public Use
  Company Number: IT-ACCORD-137640

PATIENT
  Age: 79 Year
  Sex: Male

DRUGS (2)
  1. FLUOROURACIL AHCL [Suspect]
     Active Substance: FLUOROURACIL
     Indication: PRODUCT USED FOR UNKNOWN INDICATION
     Dosage: STRENGTH: 50 MG/ML
     Route: 042
  2. OXALIPLATIN SUN [Concomitant]
     Active Substance: OXALIPLATIN
     Dosage: STRENGTH: 5 MG/ML
     Route: 042

REACTIONS (1)
  - Leukopenia [Recovering/Resolving]
